FAERS Safety Report 15364421 (Version 1)
Quarter: 2018Q3

REPORT INFORMATION
  Report Type: Spontaneous
  Country: CN (occurrence: CN)
  Receive Date: 20180909
  Receipt Date: 20180909
  Transmission Date: 20181010
  Serious: Yes (Other)
  Sender: FDA-Public Use
  Company Number: CN-BAXTER-2018BAX022989

PATIENT
  Age: 67 Year
  Sex: Female
  Weight: 53.4 kg

DRUGS (3)
  1. 5% GLUCOSE  INJECTION [Suspect]
     Active Substance: DEXTROSE
     Indication: MEDICATION DILUTION
     Route: 041
     Dates: start: 20180705, end: 20180705
  2. VITAMIN C [Suspect]
     Active Substance: ASCORBIC ACID
     Indication: MALNUTRITION
     Route: 041
     Dates: start: 20180705, end: 20180705
  3. VITAMIN C [Suspect]
     Active Substance: ASCORBIC ACID
     Indication: NUTRITIONAL SUPPLEMENTATION

REACTIONS (2)
  - Dyspnoea [Recovering/Resolving]
  - Flushing [Recovering/Resolving]

NARRATIVE: CASE EVENT DATE: 20180705
